FAERS Safety Report 9720846 (Version 1)
Quarter: 2013Q4

REPORT INFORMATION
  Report Type: Spontaneous
  Country: FR (occurrence: FR)
  Receive Date: 20131129
  Receipt Date: 20131129
  Transmission Date: 20140711
  Serious: Yes (Death)
  Sender: FDA-Public Use
  Company Number: FR-009507513-1311FRA009116

PATIENT
  Age: 58 Year
  Sex: Male

DRUGS (2)
  1. ORGARAN [Suspect]
     Indication: HEPARIN-INDUCED THROMBOCYTOPENIA
     Dosage: 100 IU, UNK
     Route: 051
     Dates: start: 20131011, end: 20131020
  2. ARGANOVA [Suspect]
     Indication: HEPARIN-INDUCED THROMBOCYTOPENIA
     Dosage: UNK
     Route: 051
     Dates: start: 20131020, end: 20131021

REACTIONS (1)
  - Haemorrhage [Fatal]
